FAERS Safety Report 17664991 (Version 2)
Quarter: 2020Q2

REPORT INFORMATION
  Report Type: Spontaneous
  Country: US (occurrence: US)
  Receive Date: 20200414
  Receipt Date: 20200507
  Transmission Date: 20200713
  Serious: No
  Sender: FDA-Public Use
  Company Number: US-PFIZER INC-2020151633

PATIENT
  Age: 54 Year
  Sex: Female
  Weight: 94.8 kg

DRUGS (1)
  1. IBRANCE [Suspect]
     Active Substance: PALBOCICLIB
     Indication: BREAST CANCER METASTATIC
     Dosage: 125 MG, CYCLIC ( FOR 28 DAYS AND 1 WEEK OFF)
     Route: 048
     Dates: start: 2016, end: 201912

REACTIONS (1)
  - Neoplasm progression [Unknown]
